FAERS Safety Report 7659528-3 (Version None)
Quarter: 2011Q3

REPORT INFORMATION
  Report Type: 
  Country: None (occurrence: None)
  Receive Date: 20110805
  Receipt Date: 20110801
  Transmission Date: 20111222
  Serious: Yes (Hospitalization)
  Sender: FDA-Public Use
  Company Number: AU-AMGEN-AUSSP2011023904

PATIENT
  Age: 54 Year
  Sex: Female

DRUGS (8)
  1. NPLATE [Suspect]
     Dosage: 75 A?G, QWK
     Dates: start: 20110524, end: 20110531
  2. NPLATE [Suspect]
     Dosage: 70 A?G, QWK
     Route: 058
     Dates: start: 20110307, end: 20110512
  3. PANTOPRAZOLE [Concomitant]
     Dosage: 40 MG, UNK
     Route: 048
  4. AMLODIPINE BESYLATE [Concomitant]
     Dosage: 5 MG, UNK
     Route: 048
  5. MICARDIS [Concomitant]
     Dosage: 40 MG, UNK
     Route: 048
  6. NPLATE [Suspect]
     Indication: IDIOPATHIC THROMBOCYTOPENIC PURPURA
     Dosage: 2 A?G/KG, UNK
  7. ZIMSTAT [Concomitant]
     Dosage: 100 MG, UNK
     Route: 048
  8. TAZAC [Concomitant]
     Dosage: 150 MG, BID
     Route: 048

REACTIONS (2)
  - RASH MACULO-PAPULAR [None]
  - PLATELET COUNT DECREASED [None]
